FAERS Safety Report 4848616-2 (Version None)
Quarter: 2005Q4

REPORT INFORMATION
  Report Type: 
  Country: None (occurrence: None)
  Receive Date: 20051206
  Receipt Date: 20051124
  Transmission Date: 20060501
  Serious: Yes (Death)
  Sender: FDA-Public Use
  Company Number: 2005124316

PATIENT
  Age: 31 Year
  Sex: Male

DRUGS (2)
  1. NEURONTIN [Suspect]
     Indication: DRUG WITHDRAWAL HEADACHE
     Dosage: 1200 MG (400 MG, 3 IN 1 D), ORAL
     Route: 048
     Dates: start: 20050418, end: 20050520
  2. AMITRIPTYLINE HYDROCHLORIDE [Suspect]
     Indication: DRUG WITHDRAWAL HEADACHE
     Dosage: 75 MG (25 MG, 3 IN 1 D), ORAL
     Route: 048
     Dates: start: 20041216

REACTIONS (2)
  - COMPLETED SUICIDE [None]
  - DEPRESSION SUICIDAL [None]
